FAERS Safety Report 20265628 (Version 1)
Quarter: 2021Q4

REPORT INFORMATION
  Report Type: Other
  Country: CN (occurrence: None)
  Receive Date: 20211231
  Receipt Date: 20211231
  Transmission Date: 20220303
  Serious: Yes (Other)
  Sender: FDA-Public Use
  Company Number: CN-ROCHE-2987451

PATIENT

DRUGS (8)
  1. BEVACIZUMAB [Suspect]
     Active Substance: BEVACIZUMAB
     Indication: Adenocarcinoma of colon
     Route: 065
  2. OXALIPLATIN [Suspect]
     Active Substance: OXALIPLATIN
     Indication: Adenocarcinoma of colon
     Dosage: DAY 1
     Route: 065
  3. LEUCOVORIN [Suspect]
     Active Substance: LEUCOVORIN
     Indication: Adenocarcinoma of colon
     Dosage: DAY 1
     Route: 065
  4. FLUOROURACIL [Suspect]
     Active Substance: FLUOROURACIL
     Indication: Adenocarcinoma of colon
     Dosage: DAY 1
     Route: 040
  5. FLUOROURACIL [Suspect]
     Active Substance: FLUOROURACIL
     Dosage: OVER 46 HOURS
     Route: 042
  6. IRINOTECAN [Suspect]
     Active Substance: IRINOTECAN
     Indication: Adenocarcinoma of colon
     Route: 065
  7. CETUXIMAB [Suspect]
     Active Substance: CETUXIMAB
     Indication: Adenocarcinoma of colon
     Dosage: ONCE PER WEEK (WITH AN INITIAL LOADING DOSE OF 400 MG/M2 AND THEREAFTER 250 MG/M2) OR ONCE EVERY 2 W
     Route: 065
  8. RALTITREXED [Suspect]
     Active Substance: RALTITREXED
     Indication: Adenocarcinoma of colon
     Route: 065

REACTIONS (6)
  - Pancytopenia [Unknown]
  - Hepatic function abnormal [Unknown]
  - Renal impairment [Unknown]
  - Haemorrhage [Unknown]
  - Gastrointestinal disorder [Unknown]
  - Wound infection [Unknown]
